FAERS Safety Report 6241388-9 (Version None)
Quarter: 2009Q2

REPORT INFORMATION
  Report Type: 
  Country: None (occurrence: None)
  Receive Date: 20090619
  Receipt Date: 20090619
  Transmission Date: 20091009
  Serious: No
  Sender: FDA-Public Use
  Company Number: None

PATIENT
  Sex: Male
  Weight: 78.9259 kg

DRUGS (1)
  1. ZICAM COLD REMEDY NASAL GEL AS SOLD MATRIXX [Suspect]
     Indication: NASAL CONGESTION
     Dosage: 1-2 SPRAYS PER NOSTRIL 2X DAY NASAL
     Route: 045
     Dates: start: 20060101, end: 20070201

REACTIONS (3)
  - AGEUSIA [None]
  - ANOSMIA [None]
  - RHINALGIA [None]
